FAERS Safety Report 12340314 (Version 1)
Quarter: 2016Q2

REPORT INFORMATION
  Report Type: Spontaneous
  Country: US (occurrence: None)
  Receive Date: 20160505
  Receipt Date: 20160505
  Transmission Date: 20160815
  Serious: Yes (Hospitalization, Disabling)
  Sender: FDA-Public Use
  Company Number: None

PATIENT
  Age: 45 Year
  Sex: Female
  Weight: 92.08 kg

DRUGS (8)
  1. LUPRON DEPOT [Suspect]
     Active Substance: LEUPROLIDE ACETATE
     Indication: UTERINE LEIOMYOMA
     Dosage: EVERY 3 MONTHS INTO THE MUSCLE
     Route: 030
  2. LUPRON DEPOT [Suspect]
     Active Substance: LEUPROLIDE ACETATE
     Indication: CYST
     Dosage: EVERY 3 MONTHS INTO THE MUSCLE
     Route: 030
  3. DILAHDID [Concomitant]
  4. ATENOLOL. [Concomitant]
     Active Substance: ATENOLOL
  5. METHOTREXATE [Concomitant]
     Active Substance: METHOTREXATE
  6. LUPRON DEPOT [Suspect]
     Active Substance: LEUPROLIDE ACETATE
     Indication: ENDOMETRIOSIS
     Dosage: EVERY 3 MONTHS INTO THE MUSCLE
     Route: 030
  7. TIZANIDINE. [Concomitant]
     Active Substance: TIZANIDINE
  8. PROGESTERONE. [Concomitant]
     Active Substance: PROGESTERONE

REACTIONS (12)
  - Weight increased [None]
  - Amnesia [None]
  - Loss of employment [None]
  - Depression [None]
  - Impaired work ability [None]
  - Fibromyalgia [None]
  - Malaise [None]
  - Respiratory tract infection [None]
  - Asthma [None]
  - Speech disorder [None]
  - Activities of daily living impaired [None]
  - Rheumatoid arthritis [None]

NARRATIVE: CASE EVENT DATE: 20090501
